FAERS Safety Report 24149861 (Version 6)
Quarter: 2025Q2

REPORT INFORMATION
  Report Type: Report from Study
  Country: CN (occurrence: CN)
  Receive Date: 20240730
  Receipt Date: 20250526
  Transmission Date: 20250716
  Serious: Yes (Hospitalization, Other)
  Sender: ROCHE
  Company Number: CN-ROCHE-10000028979

PATIENT
  Age: 69 Year
  Sex: Male
  Weight: 52 kg

DRUGS (60)
  1. POLIVY [Suspect]
     Active Substance: POLATUZUMAB VEDOTIN-PIIQ
     Indication: Diffuse large B-cell lymphoma
     Route: 042
     Dates: start: 20240225, end: 20240225
  2. RITUXIMAB [Suspect]
     Active Substance: RITUXIMAB
     Indication: Diffuse large B-cell lymphoma
     Route: 042
     Dates: start: 20240224, end: 20240224
  3. RITUXIMAB [Suspect]
     Active Substance: RITUXIMAB
     Route: 042
     Dates: start: 20240224, end: 20240224
  4. OXALIPLATIN [Suspect]
     Active Substance: OXALIPLATIN
     Indication: Diffuse large B-cell lymphoma
     Route: 042
     Dates: start: 20240225, end: 20240225
  5. GEMCITABINE [Suspect]
     Active Substance: GEMCITABINE
     Indication: Diffuse large B-cell lymphoma
     Route: 042
     Dates: start: 20240225, end: 20240225
  6. TISLELIZUMAB [Suspect]
     Active Substance: TISLELIZUMAB
     Indication: Diffuse large B-cell lymphoma
     Route: 042
     Dates: start: 20240226, end: 20240226
  7. LEVOFLOXACIN [Concomitant]
     Active Substance: LEVOFLOXACIN
     Route: 048
     Dates: start: 20240321, end: 20240401
  8. METRONIDAZOLE [Concomitant]
     Active Substance: METRONIDAZOLE
     Route: 048
     Dates: start: 20240425
  9. METRONIDAZOLE [Concomitant]
     Active Substance: METRONIDAZOLE
     Route: 048
     Dates: start: 20240425, end: 20240511
  10. MEROPENEM [Concomitant]
     Active Substance: MEROPENEM
     Route: 042
     Dates: start: 20240416, end: 20240424
  11. MEROPENEM [Concomitant]
     Active Substance: MEROPENEM
     Route: 042
     Dates: start: 20240413, end: 20240413
  12. MEROPENEM [Concomitant]
     Active Substance: MEROPENEM
     Route: 042
     Dates: start: 20240425, end: 20240428
  13. MEROPENEM [Concomitant]
     Active Substance: MEROPENEM
     Route: 042
     Dates: start: 20240416, end: 20240424
  14. Adenosylmethionine Succinate for Injection [Concomitant]
     Route: 042
     Dates: start: 20240413, end: 20240429
  15. URSODIOL [Concomitant]
     Active Substance: URSODIOL
     Route: 048
     Dates: start: 20240414, end: 20240426
  16. URSODIOL [Concomitant]
     Active Substance: URSODIOL
     Route: 048
     Dates: start: 20240413, end: 20240413
  17. diammonium glycyrrhizinate enteric-coated capsules [Concomitant]
     Route: 048
     Dates: start: 20240414, end: 20240424
  18. diammonium glycyrrhizinate enteric-coated capsules [Concomitant]
     Route: 048
     Dates: start: 20240413, end: 20240413
  19. Recombinant human thrombopoietin injection [Concomitant]
     Route: 058
     Dates: start: 20240414, end: 20240502
  20. Etamsylate Injection [Concomitant]
     Indication: Haemostasis
     Route: 042
     Dates: start: 20240414, end: 20240502
  21. RAFUTROMBOPAG OLAMINE [Concomitant]
     Active Substance: RAFUTROMBOPAG OLAMINE
     Route: 048
     Dates: start: 20240416, end: 20240502
  22. RAFUTROMBOPAG OLAMINE [Concomitant]
     Active Substance: RAFUTROMBOPAG OLAMINE
     Route: 048
     Dates: start: 20240414, end: 20240414
  23. Human granulocyte colony-stimulating factor injection [Concomitant]
     Route: 058
     Dates: start: 20240416, end: 20240422
  24. Human granulocyte colony-stimulating factor injection [Concomitant]
     Route: 058
     Dates: start: 20240413, end: 20240413
  25. Human granulocyte colony-stimulating factor injection [Concomitant]
     Route: 058
     Dates: start: 20240415, end: 20240415
  26. valaciclovir hydrochloride tablets [Concomitant]
     Route: 048
     Dates: start: 20240418, end: 20240421
  27. valaciclovir hydrochloride tablets [Concomitant]
     Route: 048
     Dates: start: 20240417, end: 20240417
  28. ALBUMIN HUMAN [Concomitant]
     Active Substance: ALBUMIN HUMAN
     Route: 042
     Dates: start: 20240417, end: 20240420
  29. VANCOMYCIN HYDROCHLORIDE [Concomitant]
     Active Substance: VANCOMYCIN HYDROCHLORIDE
     Indication: Infection prophylaxis
     Route: 042
     Dates: start: 20240419, end: 20240515
  30. Acetylcysteine Solution for Inhalation [Concomitant]
     Indication: Productive cough
     Route: 055
     Dates: start: 20240419, end: 20240501
  31. Acetylcysteine Solution for Inhalation [Concomitant]
     Route: 055
     Dates: start: 20240418, end: 20240418
  32. MOXIFLOXACIN [Concomitant]
     Active Substance: MOXIFLOXACIN
     Route: 050
     Dates: start: 202403, end: 202404
  33. CEFOPERAZONE SODIUM\SULBACTAM SODIUM [Concomitant]
     Active Substance: CEFOPERAZONE SODIUM\SULBACTAM SODIUM
     Route: 050
     Dates: start: 202403, end: 202404
  34. GLUTATHIONE [Concomitant]
     Active Substance: GLUTATHIONE
     Route: 050
     Dates: start: 202403, end: 202404
  35. Magnesium Isoglycyrrhizinate Injection [Concomitant]
     Route: 050
     Dates: start: 202403, end: 202404
  36. AMINO ACIDS, SOURCE UNSPECIFIED [Concomitant]
     Active Substance: AMINO ACIDS, SOURCE UNSPECIFIED
     Route: 050
     Dates: start: 202403, end: 202404
  37. Inosine for Injection [Concomitant]
     Route: 050
     Dates: start: 202403, end: 202404
  38. BERBERINE [Concomitant]
     Active Substance: BERBERINE
     Indication: Analgesic therapy
     Route: 048
     Dates: start: 20240420, end: 20240420
  39. ENTECAVIR [Concomitant]
     Active Substance: ENTECAVIR
     Route: 048
     Dates: start: 20240422, end: 20240506
  40. ENTECAVIR [Concomitant]
     Active Substance: ENTECAVIR
     Route: 048
     Dates: start: 20240226, end: 20240325
  41. POTASSIUM CHLORIDE [Concomitant]
     Active Substance: POTASSIUM CHLORIDE
     Route: 048
     Dates: start: 20240423, end: 20240503
  42. POTASSIUM CHLORIDE [Concomitant]
     Active Substance: POTASSIUM CHLORIDE
     Route: 048
     Dates: start: 20240420, end: 20240422
  43. POTASSIUM CHLORIDE [Concomitant]
     Active Substance: POTASSIUM CHLORIDE
     Route: 048
     Dates: start: 20240419, end: 20240419
  44. AMBROXOL HYDROCHLORIDE [Concomitant]
     Active Substance: AMBROXOL HYDROCHLORIDE
     Indication: Productive cough
     Route: 042
     Dates: start: 20240419, end: 20240503
  45. AMBROXOL HYDROCHLORIDE [Concomitant]
     Active Substance: AMBROXOL HYDROCHLORIDE
     Route: 042
     Dates: start: 20240418, end: 20240418
  46. OMEPRAZOLE [Concomitant]
     Active Substance: OMEPRAZOLE
     Route: 048
     Dates: start: 20240425, end: 20240425
  47. OMEPRAZOLE [Concomitant]
     Active Substance: OMEPRAZOLE
     Dosage: ENTERIC COATED
     Route: 048
     Dates: start: 20240415, end: 20240415
  48. DEXAMETHASONE SODIUM PHOSPHATE [Concomitant]
     Active Substance: DEXAMETHASONE SODIUM PHOSPHATE
     Route: 042
     Dates: start: 20240417, end: 20240417
  49. DEXAMETHASONE SODIUM PHOSPHATE [Concomitant]
     Active Substance: DEXAMETHASONE SODIUM PHOSPHATE
     Route: 042
     Dates: start: 20240420, end: 20240420
  50. DEXAMETHASONE SODIUM PHOSPHATE [Concomitant]
     Active Substance: DEXAMETHASONE SODIUM PHOSPHATE
     Route: 042
     Dates: start: 20240423, end: 20240423
  51. DEXAMETHASONE SODIUM PHOSPHATE [Concomitant]
     Active Substance: DEXAMETHASONE SODIUM PHOSPHATE
     Route: 042
     Dates: start: 20240425, end: 20240425
  52. HUMAN IMMUNOGLOBULIN G [Concomitant]
     Active Substance: HUMAN IMMUNOGLOBULIN G
     Route: 042
     Dates: start: 20240417, end: 20240417
  53. LOPERAMIDE HYDROCHLORIDE [Concomitant]
     Active Substance: LOPERAMIDE HYDROCHLORIDE
     Route: 048
     Dates: start: 20240420, end: 20240420
  54. BICYCLOL [Concomitant]
     Active Substance: BICYCLOL
     Route: 048
     Dates: start: 20240424, end: 20240424
  55. BICYCLOL [Concomitant]
     Active Substance: BICYCLOL
     Route: 048
     Dates: start: 20240425, end: 20240430
  56. METHYLPREDNISOLONE SODIUM SUCCINATE [Concomitant]
     Active Substance: METHYLPREDNISOLONE SODIUM SUCCINATE
     Route: 042
     Dates: start: 20240415, end: 20240415
  57. METHYLPREDNISOLONE SODIUM SUCCINATE [Concomitant]
     Active Substance: METHYLPREDNISOLONE SODIUM SUCCINATE
     Route: 042
     Dates: start: 20240425, end: 20240425
  58. PROMETHAZINE HYDROCHLORIDE [Concomitant]
     Active Substance: PROMETHAZINE HYDROCHLORIDE
     Route: 042
     Dates: start: 20240416, end: 20240416
  59. Berberine hydrochloride tablets [Concomitant]
     Route: 048
     Dates: start: 20240420, end: 20240420
  60. Entecavir tablets [Concomitant]
     Route: 048
     Dates: start: 20240422, end: 20240506

REACTIONS (11)
  - Hypocalcaemia [Recovered/Resolved]
  - Blood alkaline phosphatase increased [Not Recovered/Not Resolved]
  - Gamma-glutamyltransferase increased [Not Recovered/Not Resolved]
  - Hypoalbuminaemia [Recovered/Resolved]
  - Blood bilirubin increased [Not Recovered/Not Resolved]
  - Platelet count decreased [Recovered/Resolved]
  - Hypophosphataemia [Recovered/Resolved]
  - Neutrophil count decreased [Recovered/Resolved]
  - White blood cell count decreased [Recovered/Resolved]
  - Jaundice cholestatic [Recovered/Resolved]
  - Hypophosphataemia [Recovered/Resolved]

NARRATIVE: CASE EVENT DATE: 20240325
